FAERS Safety Report 9102731 (Version 1)
Quarter: 2013Q1

REPORT INFORMATION
  Report Type: Spontaneous
  Country: BR (occurrence: BR)
  Receive Date: 20130219
  Receipt Date: 20130219
  Transmission Date: 20140127
  Serious: Yes (Other)
  Sender: FDA-Public Use
  Company Number: BR-PFIZER INC-2013039851

PATIENT
  Age: 51 Year
  Sex: Male
  Weight: 65 kg

DRUGS (3)
  1. SUTENT [Suspect]
     Indication: RENAL CELL CARCINOMA
     Dosage: 1 CAPSULE OF 50 MG ONCE DAILY CYCLIC (CYCLE 4X2)
     Route: 048
     Dates: start: 20120115
  2. ENALAPRIL [Suspect]
     Dosage: WHEN THE ARTERIAL PRESSURE IS ABOVE 150 MMHG
     Route: 048
  3. OMEPRAZOL [Concomitant]

REACTIONS (8)
  - Blood pressure increased [Not Recovered/Not Resolved]
  - Feeding disorder [Not Recovered/Not Resolved]
  - Decubitus ulcer [Not Recovered/Not Resolved]
  - Yellow skin [Not Recovered/Not Resolved]
  - Skin irritation [Unknown]
  - Wound [Not Recovered/Not Resolved]
  - Dysstasia [Not Recovered/Not Resolved]
  - Erythema [Unknown]
